FAERS Safety Report 9937249 (Version 5)
Quarter: 2014Q4

REPORT INFORMATION
  Report Type: Spontaneous
  Country: ES (occurrence: ES)
  Receive Date: 20140302
  Receipt Date: 20141006
  Transmission Date: 20150529
  Serious: Yes (Other)
  Sender: FDA-Public Use
  Company Number: ES-AMGEN-ESPSP2014013400

PATIENT
  Age: 75 Year
  Sex: Female

DRUGS (1)
  1. PROLIA [Suspect]
     Active Substance: DENOSUMAB
     Indication: PRODUCT USED FOR UNKNOWN INDICATION
     Dosage: UNK
     Route: 065
     Dates: start: 20110118

REACTIONS (5)
  - Osteonecrosis of jaw [Unknown]
  - Tooth loss [Unknown]
  - Hip fracture [Unknown]
  - Tooth disorder [Not Recovered/Not Resolved]
  - Fracture [Unknown]

NARRATIVE: CASE EVENT DATE: 2011
